FAERS Safety Report 5662843-6 (Version None)
Quarter: 2008Q1

REPORT INFORMATION
  Report Type: 
  Country: None (occurrence: None)
  Receive Date: 20080311
  Receipt Date: 20080311
  Transmission Date: 20080703
  Serious: Yes (Hospitalization, Other)
  Sender: FDA-Public Use
  Company Number: None

PATIENT
  Sex: Female
  Weight: 68.2 kg

DRUGS (3)
  1. CARBOPLATIN [Suspect]
     Dosage: 419 MG
     Dates: end: 20080207
  2. TAXOL [Suspect]
     Dosage: 394 MG
     Dates: end: 20080207
  3. BAY 43-9006 TOSYLATE (BAY 54-9085; SORAFENIB TOSYLATE) [Suspect]
     Dosage: 6800 MG
     Dates: end: 20080225

REACTIONS (14)
  - ANAL FISTULA [None]
  - ASTHENIA [None]
  - BLOOD POTASSIUM DECREASED [None]
  - CELLULITIS [None]
  - CORYNEBACTERIUM INFECTION [None]
  - CULTURE POSITIVE [None]
  - DECREASED APPETITE [None]
  - FATIGUE [None]
  - PERINEAL ABSCESS [None]
  - STAPHYLOCOCCAL ABSCESS [None]
  - VAGINAL DISCHARGE [None]
  - VAGINAL HAEMORRHAGE [None]
  - VAGINAL PAIN [None]
  - WEIGHT DECREASED [None]
